FAERS Safety Report 7432744-1 (Version None)
Quarter: 2011Q2

REPORT INFORMATION
  Report Type: 
  Country: None (occurrence: None)
  Receive Date: 20110422
  Receipt Date: 20110418
  Transmission Date: 20111010
  Serious: Yes (Hospitalization)
  Sender: FDA-Public Use
  Company Number: A0923360A

PATIENT
  Age: 79 Year
  Sex: Female

DRUGS (3)
  1. ADVAIR HFA [Suspect]
     Indication: CHRONIC OBSTRUCTIVE PULMONARY DISEASE
     Dosage: 1PUFF TWICE PER DAY
     Route: 055
     Dates: start: 20010101, end: 20100801
  2. ADVAIR HFA [Suspect]
     Dosage: 1PUFF PER DAY
     Route: 055
     Dates: start: 20100801
  3. SPIRIVA [Concomitant]

REACTIONS (3)
  - DRUG INEFFECTIVE [None]
  - LUNG INFECTION [None]
  - DRUG ADMINISTRATION ERROR [None]
